FAERS Safety Report 8262114-8 (Version None)
Quarter: 2012Q2

REPORT INFORMATION
  Report Type: 
  Country: None (occurrence: None)
  Receive Date: 20120405
  Receipt Date: 20120331
  Transmission Date: 20120825
  Serious: Yes (Other)
  Sender: FDA-Public Use
  Company Number: PHHY2012DE028557

PATIENT
  Sex: Male
  Weight: 66 kg

DRUGS (11)
  1. ANGIOTENSIN II ANTAGONISTS [Concomitant]
     Dates: end: 20100809
  2. DIURETICS [Concomitant]
  3. RASILEZ [Concomitant]
     Indication: HYPERTENSION
     Route: 048
  4. IRBESARTAN [Concomitant]
     Indication: HYPERTENSION
     Dosage: 0.5 DF, (IN THE MORNING) QD
     Route: 048
     Dates: start: 20081107
  5. PLATELET AGGREGATION INHIBITORS [Concomitant]
  6. HMG COA REDUCTASE INHIBITORS [Concomitant]
  7. METOPROLOL TARTRATE AND HYDROCHLOROTHIAZIDE [Concomitant]
     Indication: HYPERTENSION
     Dosage: 1 DF, (0.5 DF IN MORNING, 0.5 DF AT NIGHT) QD
     Route: 048
     Dates: start: 20081107
  8. ANTIDEPRESSANTS [Concomitant]
  9. VASODILATORS USED IN CARDIAC DISEASES [Concomitant]
     Dates: end: 20100809
  10. FLUVASTATIN SODIUM [Suspect]
     Indication: HYPERLIPIDAEMIA
     Dosage: 1 DF, QD
     Route: 048
     Dates: start: 20081107
  11. LORAZEPAM [Concomitant]
     Indication: DEPRESSION
     Dosage: 0.5 DF, (AT NIGHT) QD
     Route: 048
     Dates: start: 20081107

REACTIONS (2)
  - BLOOD PRESSURE INCREASED [None]
  - DYSPNOEA [None]
